FAERS Safety Report 9473969 (Version 2)
Quarter: 2013Q4

REPORT INFORMATION
  Report Type: Spontaneous
  Country: CA (occurrence: CA)
  Receive Date: 20130823
  Receipt Date: 20131030
  Transmission Date: 20140711
  Serious: Yes (Other)
  Sender: FDA-Public Use
  Company Number: CA-AMGEN-CANSP2013059360

PATIENT
  Age: 38 Year
  Sex: Female

DRUGS (6)
  1. ENBREL [Suspect]
     Indication: PSORIATIC ARTHROPATHY
     Dosage: 50 MG, 2 TIMES/WK
     Route: 058
     Dates: start: 20130807, end: 20130829
  2. ENBREL [Suspect]
     Indication: PSORIASIS
  3. CYMBALTA [Concomitant]
     Dosage: 30 MG, QD
  4. VITAMIN D                          /00107901/ [Concomitant]
     Dosage: 4000 IU, UNK
  5. FOLIC ACID [Concomitant]
     Dosage: 1 MG, QD
  6. MULTIVITAMINS, PLAIN [Concomitant]
     Dosage: UNK

REACTIONS (7)
  - Injection site cellulitis [Not Recovered/Not Resolved]
  - Local swelling [Unknown]
  - Erythema [Unknown]
  - Injection site reaction [Unknown]
  - Injection site erythema [Unknown]
  - Injection site pain [Unknown]
  - Injection site swelling [Unknown]
